FAERS Safety Report 5047918-7 (Version None)
Quarter: 2006Q3

REPORT INFORMATION
  Report Type: 
  Country: None (occurrence: None)
  Receive Date: 20060711
  Receipt Date: 20060705
  Transmission Date: 20061208
  Serious: Yes (Other)
  Sender: FDA-Public Use
  Company Number: GB-GLAXOSMITHKLINE-B0429933A

PATIENT
  Sex: Male

DRUGS (3)
  1. FORTUM [Suspect]
     Indication: DRUG USE FOR UNKNOWN INDICATION
     Route: 065
  2. CEFTRIAXONE [Concomitant]
  3. OTHER MEDICATIONS [Concomitant]

REACTIONS (1)
  - HEPATIC FAILURE [None]
